FAERS Safety Report 8388812-3 (Version None)
Quarter: 2012Q2

REPORT INFORMATION
  Report Type: 
  Country: None (occurrence: None)
  Receive Date: 20120528
  Receipt Date: 20120518
  Transmission Date: 20120825
  Serious: Yes (Hospitalization)
  Sender: FDA-Public Use
  Company Number: US-BIOGENIDEC-2011BI040613

PATIENT
  Age: 63 Year
  Sex: Female

DRUGS (20)
  1. LISINOPRIL [Concomitant]
     Route: 048
  2. LOVAZA [Concomitant]
     Route: 048
  3. ZINC SULFATE [Concomitant]
  4. VITAMIN A [Concomitant]
     Route: 048
  5. VITAMIN C [Concomitant]
     Route: 048
  6. SENNA-MINT WAF [Concomitant]
     Route: 048
  7. MULTIVITAMIN WITH MINERALS [Concomitant]
  8. ZINC OXIDE [Concomitant]
     Route: 061
  9. TYSABRI [Suspect]
     Route: 042
     Dates: start: 20120104, end: 20120516
  10. DOCUSATE [Concomitant]
  11. ALBUTEROL [Concomitant]
     Route: 055
  12. TYSABRI [Suspect]
     Indication: MULTIPLE SCLEROSIS
     Route: 042
     Dates: start: 20090129, end: 20110816
  13. BACLOFEN [Concomitant]
     Route: 048
  14. LOVASTATIN [Concomitant]
     Route: 048
  15. GABAPENTIN [Concomitant]
     Route: 048
  16. HYPROMELLOSE [Concomitant]
     Route: 047
  17. POTASSIUM CHLORIDE ER [Concomitant]
     Route: 048
  18. VITAMIN D [Concomitant]
  19. ACETAMINOPHEN [Concomitant]
     Route: 048
  20. CHOLECALCIFEROL [Concomitant]
     Route: 048

REACTIONS (3)
  - PNEUMONIA [None]
  - DECUBITUS ULCER [None]
  - LUNG SQUAMOUS CELL CARCINOMA STAGE UNSPECIFIED [None]
